FAERS Safety Report 4781518-9 (Version None)
Quarter: 2005Q3

REPORT INFORMATION
  Report Type: 
  Country: None (occurrence: None)
  Receive Date: 20050928
  Receipt Date: 20050921
  Transmission Date: 20060218
  Serious: Yes (Other)
  Sender: FDA-Public Use
  Company Number: 2005UW13981

PATIENT

DRUGS (3)
  1. SEROQUEL [Suspect]
     Route: 048
     Dates: start: 20050601
  2. VALPROIC ACID [Concomitant]
  3. CLOZAPINE [Concomitant]

REACTIONS (1)
  - PANCREATITIS HAEMORRHAGIC [None]
